FAERS Safety Report 13473787 (Version 1)
Quarter: 2017Q2

REPORT INFORMATION
  Report Type: Spontaneous
  Country: FR (occurrence: FR)
  Receive Date: 20170424
  Receipt Date: 20170424
  Transmission Date: 20170830
  Serious: Yes (Hospitalization, Other)
  Sender: FDA-Public Use
  Company Number: FR-PFIZER INC-2017173692

PATIENT
  Age: 74 Year
  Sex: Female

DRUGS (9)
  1. THERALENE [Concomitant]
     Active Substance: TRIMEPRAZINE
     Dosage: UNK
     Route: 048
     Dates: start: 20161002
  2. NEBIVOLOL. [Concomitant]
     Active Substance: NEBIVOLOL
     Indication: HYPERTENSION
     Dosage: 5 MG, 1X/DAY
     Route: 048
     Dates: start: 20160930
  3. TAREG [Concomitant]
     Active Substance: VALSARTAN
     Indication: HYPERTENSION
     Dosage: 160 MG, 1X/DAY
     Route: 048
  4. LEXOMIL ROCHE [Concomitant]
     Active Substance: BROMAZEPAM
     Dosage: UNK
     Route: 048
  5. LOXEN L P [Concomitant]
     Active Substance: NICARDIPINE HYDROCHLORIDE
     Indication: HYPERTENSION
     Dosage: 50 MG, 2X/DAY
     Route: 048
  6. CORTANCYL [Concomitant]
     Active Substance: PREDNISONE
     Dosage: UNK
     Route: 048
  7. DEPAMIDE [Concomitant]
     Active Substance: VALPROMIDE
     Indication: PSYCHOTIC DISORDER
     Dosage: 300 MG, 1X/DAY
     Route: 048
     Dates: start: 20161002
  8. NEURONTIN [Suspect]
     Active Substance: GABAPENTIN
     Indication: NEURALGIA
     Dosage: 300 MG, 3X/DAY
     Route: 048
     Dates: start: 201702
  9. PLAQUENIL [Concomitant]
     Active Substance: HYDROXYCHLOROQUINE SULFATE
     Indication: AUTOIMMUNE HEPATITIS
     Dosage: 200 MG, 1X/DAY
     Route: 048

REACTIONS (11)
  - Confusional state [Unknown]
  - Somnolence [Recovered/Resolved]
  - Altered state of consciousness [Unknown]
  - Haematoma [Unknown]
  - Language disorder [Unknown]
  - Aphasia [Unknown]
  - Pyrexia [Unknown]
  - Fall [Recovered/Resolved]
  - Condition aggravated [Recovered/Resolved]
  - Craniocerebral injury [Unknown]
  - Pain [Unknown]

NARRATIVE: CASE EVENT DATE: 20170307
